FAERS Safety Report 10249414 (Version 1)
Quarter: 2014Q2

REPORT INFORMATION
  Report Type: Spontaneous
  Country: US (occurrence: US)
  Receive Date: 20140620
  Receipt Date: 20140620
  Transmission Date: 20141212
  Serious: Yes (Hospitalization, Other)
  Sender: FDA-Public Use
  Company Number: US-009507513-1406USA006933

PATIENT
  Age: 52 Year
  Sex: Male

DRUGS (4)
  1. SIMVASTATIN TABLETS, USP [Suspect]
     Indication: HYPERCHOLESTEROLAEMIA
     Dosage: UNK
     Route: 048
  2. FORMOTEROL FUMARATE [Concomitant]
     Dosage: UNK
     Route: 048
  3. LISINOPRIL [Concomitant]
     Dosage: UNK
     Route: 048
  4. ALBUTEROL (+) IPRATROPIUM BROMIDE [Concomitant]
     Dosage: UNK

REACTIONS (1)
  - Rhabdomyolysis [Unknown]
